FAERS Safety Report 25849029 (Version 1)
Quarter: 2025Q3

REPORT INFORMATION
  Report Type: Report from Study
  Country: US (occurrence: US)
  Receive Date: 20250925
  Receipt Date: 20250925
  Transmission Date: 20251021
  Serious: Yes (Other)
  Sender: MALLINCKRODT
  Company Number: US-MALLINCKRODT-MNK202505768

PATIENT
  Age: 47 Year
  Sex: Female

DRUGS (1)
  1. CORTICOTROPIN [Suspect]
     Active Substance: CORTICOTROPIN
     Indication: Scleritis

REACTIONS (11)
  - Ear disorder [Unknown]
  - Dry mouth [Unknown]
  - Chest pain [Unknown]
  - Tongue discomfort [Unknown]
  - Oropharyngeal pain [Unknown]
  - Pain [Unknown]
  - Viral infection [Unknown]
  - Sensitivity to weather change [Unknown]
  - Headache [Unknown]
  - Asthenia [Unknown]
  - Product storage error [Unknown]

NARRATIVE: CASE EVENT DATE: 20250901
